FAERS Safety Report 8133530-X (Version None)
Quarter: 2012Q1

REPORT INFORMATION
  Report Type: 
  Country: None (occurrence: None)
  Receive Date: 20120213
  Receipt Date: 20120208
  Transmission Date: 20120608
  Serious: Yes (Other)
  Sender: FDA-Public Use
  Company Number: US-PFIZER INC-2012015776

PATIENT
  Sex: Female

DRUGS (1)
  1. DILANTIN [Suspect]
     Dosage: 100 MG, 3X/DAY (1 CAPSULE THREE TIMES A DAY 90 DAYS)
     Route: 048

REACTIONS (1)
  - CONVULSION [None]
